FAERS Safety Report 20786136 (Version 1)
Quarter: 2022Q2

REPORT INFORMATION
  Report Type: Spontaneous
  Country: US (occurrence: US)
  Receive Date: 20220504
  Receipt Date: 20220504
  Transmission Date: 20220721
  Serious: No
  Sender: FDA-Public Use
  Company Number: US-SA-SAC20220429000252

PATIENT
  Age: 45 Year
  Sex: Female

DRUGS (5)
  1. DUPIXENT [Suspect]
     Active Substance: DUPILUMAB
     Indication: Dermatitis atopic
     Dosage: 300 MG, QOW
     Route: 058
     Dates: start: 20180110
  2. BLACK COHOSH [CIMICIFUGA RACEMOSA ROOT] [Concomitant]
     Dosage: 40MG
  3. ACETAMINOPHEN\CAFFEINE [Concomitant]
     Active Substance: ACETAMINOPHEN\CAFFEINE
  4. RANITIDINE [Concomitant]
     Active Substance: RANITIDINE
     Dosage: 300MG
  5. ECHINACEA EXTRACT [ECHINACEA PURPUREA EXTRACT] [Concomitant]

REACTIONS (5)
  - Discomfort [Unknown]
  - Stress [Unknown]
  - Dermatitis atopic [Unknown]
  - Rash [Unknown]
  - Product dose omission issue [Unknown]
